FAERS Safety Report 7512205-1 (Version None)
Quarter: 2011Q2

REPORT INFORMATION
  Report Type: 
  Country: None (occurrence: None)
  Receive Date: 20110531
  Receipt Date: 20101227
  Transmission Date: 20111010
  Serious: Yes (Other)
  Sender: FDA-Public Use
  Company Number: US-BAYER-201016034NA

PATIENT
  Age: 31 Year
  Sex: Female
  Weight: 136 kg

DRUGS (14)
  1. PERCOCET [Concomitant]
     Dosage: 10 MG, TID
  2. YAZ [Suspect]
     Indication: PRODUCT USED FOR UNKNOWN INDICATION
  3. YASMIN [Suspect]
     Indication: PRODUCT USED FOR UNKNOWN INDICATION
  4. ALBUTEROL SULFATE AUTOHALER [Concomitant]
     Indication: ASTHMA
     Dosage: UNK
     Dates: start: 20010101, end: 20100101
  5. SINGULAIR [Concomitant]
     Indication: ASTHMA
     Dosage: 10 MG, UNK
     Dates: start: 20010101, end: 20100101
  6. TEQUIN [Concomitant]
     Dosage: UNK
     Dates: start: 20020101
  7. MEDROXYPROGESTERONE [Concomitant]
     Indication: POLYCYSTIC OVARIES
     Dosage: 10 UNK, UNK
  8. IBUPROFEN [Concomitant]
     Dosage: 800 MG, UNK
  9. ADVAIR DISKUS 100/50 [Concomitant]
     Indication: ASTHMA
     Dosage: UNK
     Dates: start: 20010101, end: 20100101
  10. PROTONIX [Concomitant]
     Dosage: 40 MG, UNK
  11. METFORMIN HCL [Concomitant]
     Dosage: 1000 MG, UNK
  12. PROMETHAZINE [Concomitant]
     Dosage: 25 MG, UNK
  13. LOVENOX [Concomitant]
     Indication: THROMBOSIS PROPHYLAXIS
  14. OXYCONTIN [Concomitant]
     Dosage: 60 MG, TID

REACTIONS (5)
  - PULMONARY EMBOLISM [None]
  - THROMBOSIS [None]
  - DEEP VEIN THROMBOSIS [None]
  - INJURY [None]
  - HEART INJURY [None]
